FAERS Safety Report 17749878 (Version 1)
Quarter: 2020Q2

REPORT INFORMATION
  Report Type: Spontaneous
  Country: US (occurrence: US)
  Receive Date: 20200506
  Receipt Date: 20200506
  Transmission Date: 20200714
  Serious: No
  Sender: FDA-Public Use
  Company Number: US-TEVA-2020-US-1227113

PATIENT
  Sex: Female

DRUGS (8)
  1. VITAMIN D-400 10 MCG TABLET [Concomitant]
     Dosage: 10 MCG
     Route: 065
  2. LEXAPRO [Concomitant]
     Active Substance: ESCITALOPRAM OXALATE
     Route: 065
  3. NORVASC [Concomitant]
     Active Substance: AMLODIPINE BESYLATE
     Route: 065
  4. OMEGA 3-6-9 1200 MG CAPSULE [Concomitant]
     Route: 065
  5. AUSTEDO [Suspect]
     Active Substance: DEUTETRABENAZINE
     Indication: DYSKINESIA
     Dosage: 18 MILLIGRAM DAILY;
     Route: 048
     Dates: start: 20191109
  6. COQ10 50 MG [Concomitant]
     Route: 065
  7. RISPERDAL 0.5 MG [Concomitant]
     Route: 065
  8. MULTIVITAMINS TABLET [Concomitant]
     Route: 065

REACTIONS (1)
  - Rhinorrhoea [Unknown]

NARRATIVE: CASE EVENT DATE: 2020
